FAERS Safety Report 9976658 (Version 1)
Quarter: 2014Q1

REPORT INFORMATION
  Report Type: Report from Study
  Country: US (occurrence: US)
  Receive Date: 20140306
  Receipt Date: 20140306
  Transmission Date: 20141002
  Serious: No
  Sender: FDA-Public Use
  Company Number: US-ABBVIE-13P-163-1165939-00

PATIENT
  Age: 23 Year
  Sex: Female

DRUGS (6)
  1. HUMIRA [Suspect]
     Indication: COLITIS ULCERATIVE
     Dates: start: 20131002, end: 20131016
  2. ASACOL [Concomitant]
     Indication: CROHN^S DISEASE
  3. PREDNISONE [Concomitant]
     Indication: PRODUCT USED FOR UNKNOWN INDICATION
  4. PREDNISONE [Concomitant]
     Dosage: TAPERS ON FRIDAY
  5. DICYCLOMINE [Concomitant]
     Indication: ABDOMINAL PAIN
  6. TYLENOL [Concomitant]
     Indication: PAIN

REACTIONS (1)
  - Herpes zoster [Not Recovered/Not Resolved]
